FAERS Safety Report 9345843 (Version 1)
Quarter: 2013Q2

REPORT INFORMATION
  Report Type: Spontaneous
  Country: US (occurrence: US)
  Receive Date: 20130613
  Receipt Date: 20130613
  Transmission Date: 20140414
  Serious: No
  Sender: FDA-Public Use
  Company Number: US-BAYER-2013-072538

PATIENT
  Age: 19 Year
  Sex: Female

DRUGS (1)
  1. BEYAZ [Suspect]
     Dosage: 3MG/0.02MG/0.451MG AND 0.451
     Route: 048
     Dates: start: 201106

REACTIONS (1)
  - Inappropriate schedule of drug administration [None]
